FAERS Safety Report 4737761-8 (Version None)
Quarter: 2005Q3

REPORT INFORMATION
  Report Type: 
  Country: None (occurrence: None)
  Receive Date: 20050805
  Receipt Date: 20050801
  Transmission Date: 20060218
  Serious: Yes (Hospitalization)
  Sender: FDA-Public Use
  Company Number: TAP2005Q00544

PATIENT
  Age: 83 Year
  Sex: Male

DRUGS (8)
  1. LUPRON DEPOT [Suspect]
     Indication: PROSTATE CANCER
     Dosage: 7.5 MG, 1 IN 1 D, INTRAMUSCULAR
     Route: 030
  2. PAXIL [Concomitant]
  3. LEXAPRO [Concomitant]
  4. ADVAIR DISKUS 100/50 [Concomitant]
  5. PLAVIX [Concomitant]
  6. TOPROL-XL [Concomitant]
  7. TYLENOL [Concomitant]
  8. ACETYLSALICYLIC ACID SRT [Concomitant]

REACTIONS (2)
  - HYPONATRAEMIA [None]
  - PNEUMONIA [None]
